FAERS Safety Report 4578418-6 (Version None)
Quarter: 2005Q1

REPORT INFORMATION
  Report Type: 
  Country: None (occurrence: None)
  Receive Date: 20050204
  Receipt Date: 20050204
  Transmission Date: 20050727
  Serious: Yes (Other)
  Sender: FDA-Public Use
  Company Number: None

PATIENT
  Age: 33 Year
  Sex: Female
  Weight: 100 kg

DRUGS (7)
  1. XOLAIR [Suspect]
     Indication: ASTHMA
     Dosage: 300 MG SUBQ
     Route: 003
  2. XOLAIR [Suspect]
     Indication: URTICARIA
     Dosage: 300 MG SUBQ
     Route: 003
  3. ZYRTEC [Concomitant]
  4. PREDNISONE [Concomitant]
  5. MOTRIN [Concomitant]
  6. SINGULAIR [Concomitant]
  7. PULMICORT [Concomitant]

REACTIONS (3)
  - PETECHIAE [None]
  - SERUM SICKNESS [None]
  - URTICARIA [None]
